FAERS Safety Report 14853125 (Version 1)
Quarter: 2018Q2

REPORT INFORMATION
  Report Type: Spontaneous
  Country: JP (occurrence: JP)
  Receive Date: 20180507
  Receipt Date: 20180507
  Transmission Date: 20180711
  Serious: Yes (Other)
  Sender: FDA-Public Use
  Company Number: JP-BAYER-2018-083475

PATIENT
  Age: 66 Year
  Sex: Male

DRUGS (1)
  1. NEXAVAR [Suspect]
     Active Substance: SORAFENIB
     Indication: HEPATOCELLULAR CARCINOMA
     Dosage: UNK
     Route: 048
     Dates: end: 20170701

REACTIONS (4)
  - Palmar-plantar erythrodysaesthesia syndrome [None]
  - Hypertension [None]
  - Hepatocellular carcinoma [None]
  - Hepatic infarction [None]
